FAERS Safety Report 10238110 (Version 1)
Quarter: 2014Q2

REPORT INFORMATION
  Report Type: Spontaneous
  Country: CA (occurrence: CA)
  Receive Date: 20140616
  Receipt Date: 20140616
  Transmission Date: 20141212
  Serious: Yes (Other)
  Sender: FDA-Public Use
  Company Number: PHHY2014CA073751

PATIENT
  Sex: Female

DRUGS (2)
  1. ACLASTA [Suspect]
     Indication: OSTEOPOROSIS
     Dosage: UNK UKN, UNK
     Route: 042
  2. ACLASTA [Suspect]
     Dosage: UNK UKN, UNK
     Route: 042

REACTIONS (3)
  - Hip fracture [Unknown]
  - Blood parathyroid hormone increased [Unknown]
  - Bone pain [Unknown]
